FAERS Safety Report 5945824-4 (Version None)
Quarter: 2008Q4

REPORT INFORMATION
  Report Type: 
  Country: None (occurrence: None)
  Receive Date: 20081105
  Receipt Date: 20081027
  Transmission Date: 20090506
  Serious: No
  Sender: FDA-Public Use
  Company Number: RENA-1000270

PATIENT
  Age: 80 Year
  Sex: Female

DRUGS (5)
  1. RENAGEL [Suspect]
     Indication: HYPERPHOSPHATAEMIA
     Dosage: ORAL
     Route: 048
     Dates: start: 20080101, end: 20080901
  2. PRE-SATE (CHLORPHENTERMINE HYDROCHLORIDE) [Concomitant]
  3. ERYTHROPOIETIN (ERYTHROPOIETIN) [Concomitant]
  4. VITAMINS NOS (VITAMINS NOS) [Concomitant]
  5. FORASEQ (BUDESONIDE, FORMOTEROL) [Concomitant]

REACTIONS (2)
  - ECCHYMOSIS [None]
  - PLATELET COUNT DECREASED [None]
